FAERS Safety Report 14637651 (Version 1)
Quarter: 2018Q1

REPORT INFORMATION
  Report Type: Spontaneous
  Country: FR (occurrence: FR)
  Receive Date: 20180314
  Receipt Date: 20180314
  Transmission Date: 20180509
  Serious: Yes (Life-Threatening)
  Sender: FDA-Public Use
  Company Number: FR-TEVA-2018-FR-866878

PATIENT
  Age: 66 Year
  Sex: Male
  Weight: 63 kg

DRUGS (2)
  1. NEBIVOLOL. [Suspect]
     Active Substance: NEBIVOLOL
     Indication: ACUTE CORONARY SYNDROME
     Dosage: 5 MG IN THE MORNING
     Route: 048
  2. BRILIQUE 90 MG, COMPRIM? PELLICUL? [Suspect]
     Active Substance: TICAGRELOR
     Indication: ACUTE CORONARY SYNDROME
     Route: 048

REACTIONS (2)
  - Bradycardia [Recovered/Resolved]
  - Sinoatrial block [Recovered/Resolved]
